FAERS Safety Report 4392351-4 (Version None)
Quarter: 2004Q3

REPORT INFORMATION
  Report Type: 
  Country: None (occurrence: None)
  Receive Date: 20040702
  Receipt Date: 20040622
  Transmission Date: 20050211
  Serious: Yes (Hospitalization)
  Sender: FDA-Public Use
  Company Number: US-JNJFOC-20040606133

PATIENT
  Age: 45 Year
  Sex: Male

DRUGS (6)
  1. DURAGESIC [Suspect]
     Indication: PAIN
     Dosage: 50 UG/HR, 1 IN 72 HOUR, TRANSDERMAL
     Route: 062
     Dates: start: 20031101
  2. NEURONTIN [Concomitant]
  3. DIOVAN [Concomitant]
  4. LOTREL (LOTREL) [Concomitant]
  5. PAXIL [Concomitant]
  6. XANAX [Concomitant]

REACTIONS (4)
  - APPLICATION SITE ERYTHEMA [None]
  - APPLICATION SITE PAPULES [None]
  - APPLICATION SITE PRURITUS [None]
  - MICTURITION DISORDER [None]
